FAERS Safety Report 18649323 (Version 3)
Quarter: 2021Q3

REPORT INFORMATION
  Report Type: Spontaneous
  Country: BE (occurrence: BE)
  Receive Date: 20201222
  Receipt Date: 20210716
  Transmission Date: 20211014
  Serious: Yes (Life-Threatening, Hospitalization, Other)
  Sender: FDA-Public Use
  Company Number: BE-NOVOPROD-775200

PATIENT
  Age: 12 Year
  Sex: Female
  Weight: 48.4 kg

DRUGS (4)
  1. TRESIBA [Suspect]
     Active Substance: INSULIN DEGLUDEC
     Indication: TYPE 1 DIABETES MELLITUS
     Dosage: 28 IU, QD
     Route: 058
  2. TRESIBA [Suspect]
     Active Substance: INSULIN DEGLUDEC
     Dosage: 30 IU, QD
     Route: 058
  3. NOVORAPID [Suspect]
     Active Substance: INSULIN ASPART
     Indication: TYPE 1 DIABETES MELLITUS
     Dosage: 1 UNIT PER 8 CARBOHYDRATES
     Route: 058
     Dates: start: 20170129
  4. NOVORAPID [Suspect]
     Active Substance: INSULIN ASPART
     Dosage: 1 UNIT OF NOVORAPID PER 8 GRAMS OF CARBOHYDRATES FOR BREAKFAST AND 1 UNIT PER 7 GRAMS OF CARBOHYDRAT
     Route: 058

REACTIONS (1)
  - Diabetic ketoacidosis [Recovered/Resolved]

NARRATIVE: CASE EVENT DATE: 20201209
